FAERS Safety Report 4383384-2 (Version None)
Quarter: 2004Q2

REPORT INFORMATION
  Report Type: 
  Country: None (occurrence: None)
  Receive Date: 20040623
  Receipt Date: 20040615
  Transmission Date: 20050107
  Serious: Yes (Life-Threatening, Hospitalization)
  Sender: FDA-Public Use
  Company Number: PHNR2004AU01040

PATIENT
  Age: 64 Year
  Sex: Male

DRUGS (1)
  1. LAMISIL [Suspect]
     Indication: DERMATOPHYTOSIS
     Dosage: 250 MG, QD
     Route: 048
     Dates: start: 20021215, end: 20030227

REACTIONS (7)
  - CARDIAC MURMUR [None]
  - CONTUSION [None]
  - EPISTAXIS [None]
  - PALLOR [None]
  - PANCYTOPENIA [None]
  - PYREXIA [None]
  - TACHYCARDIA [None]
